FAERS Safety Report 8479271-0 (Version None)
Quarter: 2012Q2

REPORT INFORMATION
  Report Type: 
  Country: None (occurrence: None)
  Receive Date: 20120629
  Receipt Date: 20120621
  Transmission Date: 20120825
  Serious: Yes (Other)
  Sender: FDA-Public Use
  Company Number: CA-GLAXOSMITHKLINE-A0981977A

PATIENT
  Sex: Female

DRUGS (3)
  1. NO CONCURRENT MEDICATION [Concomitant]
  2. ADVAIR DISKUS 100/50 [Suspect]
     Dosage: 1PUFF TWICE PER DAY
     Route: 055
     Dates: start: 20020101, end: 20120101
  3. ADVAIR DISKUS 100/50 [Suspect]
     Indication: ASTHMA
     Dosage: 1PUFF TWICE PER DAY
     Route: 055
     Dates: start: 20120101, end: 20120601

REACTIONS (5)
  - ATELECTASIS [None]
  - ASPERGILLOSIS [None]
  - DYSPNOEA [None]
  - DRUG INEFFECTIVE [None]
  - BRONCHOSCOPY [None]
